FAERS Safety Report 5456321-7 (Version None)
Quarter: 2007Q3

REPORT INFORMATION
  Report Type: 
  Country: None (occurrence: None)
  Receive Date: 20070918
  Receipt Date: 20070910
  Transmission Date: 20080115
  Serious: Yes (Hospitalization)
  Sender: FDA-Public Use
  Company Number: JP-MERCK-0708USA03785

PATIENT
  Age: 47 Year
  Sex: Female

DRUGS (4)
  1. SINGULAIR [Suspect]
     Indication: COUGH
     Route: 048
     Dates: start: 20070723, end: 20070729
  2. SINGULAIR [Suspect]
     Indication: PHARYNGOLARYNGEAL PAIN
     Route: 048
     Dates: start: 20070723, end: 20070729
  3. PULMICORT [Concomitant]
     Indication: ASTHMA
     Dates: start: 20070723, end: 20070725
  4. ZITHROMAC [Concomitant]
     Indication: PROPHYLAXIS
     Route: 048
     Dates: start: 20070723, end: 20070725

REACTIONS (3)
  - ANGIOEDEMA [None]
  - PHARYNGEAL OEDEMA [None]
  - TOXIC SKIN ERUPTION [None]
